FAERS Safety Report 9517993 (Version 2)
Quarter: 2013Q4

REPORT INFORMATION
  Report Type: Spontaneous
  Country: US (occurrence: US)
  Receive Date: 20130912
  Receipt Date: 20131003
  Transmission Date: 20140711
  Serious: No
  Sender: FDA-Public Use
  Company Number: US-PFIZER INC-2013262434

PATIENT
  Sex: 0

DRUGS (3)
  1. EFFEXOR XR [Suspect]
     Dosage: 225 MG, 1X/DAY
  2. EFFEXOR XR [Suspect]
     Dosage: 37.5 MG, 1X/DAY
  3. EFFEXOR XR [Suspect]
     Dosage: 37.5 MG, EVERY OTHER DAY

REACTIONS (1)
  - Drug withdrawal syndrome [Unknown]
